FAERS Safety Report 8073359-4 (Version None)
Quarter: 2012Q1

REPORT INFORMATION
  Report Type: 
  Country: None (occurrence: None)
  Receive Date: 20120126
  Receipt Date: 20120113
  Transmission Date: 20120608
  Serious: Yes (Death, Other)
  Sender: FDA-Public Use
  Company Number: IE-ACTELION-A-CH2011-57751

PATIENT
  Age: 32 Year
  Sex: Male

DRUGS (3)
  1. SILDENAFIL [Concomitant]
  2. TRACLEER [Suspect]
     Indication: PULMONARY HYPERTENSION
     Dosage: UNK
     Route: 048
  3. WARFARIN SODIUM [Concomitant]

REACTIONS (8)
  - WEIGHT DECREASED [None]
  - PULMONARY HAEMORRHAGE [None]
  - PYREXIA [None]
  - CONDITION AGGRAVATED [None]
  - WEGENER'S GRANULOMATOSIS [None]
  - COUGH [None]
  - MALAISE [None]
  - PULMONARY HYPERTENSION [None]
